FAERS Safety Report 16073050 (Version 2)
Quarter: 2019Q1

REPORT INFORMATION
  Report Type: Report from Study
  Country: DE (occurrence: DE)
  Receive Date: 20190314
  Receipt Date: 20190319
  Transmission Date: 20190418
  Serious: Yes (Hospitalization)
  Sender: FDA-Public Use
  Company Number: DE-SA-2019SA068126

PATIENT
  Age: 56 Year
  Sex: Male
  Weight: 93 kg

DRUGS (7)
  1. OXALIPLATIN. [Suspect]
     Active Substance: OXALIPLATIN
     Indication: RECTAL CANCER
     Dosage: 180 MG, QCY
     Route: 042
     Dates: start: 20190306, end: 20190306
  2. BLINDED NO STUDY DRUG GIVEN [Suspect]
     Active Substance: INVESTIGATIONAL PRODUCT
     Indication: RECTAL CANCER
     Dosage: 372 MG, QCY
     Route: 042
     Dates: start: 20190306, end: 20190306
  3. BLINDED AFLIBERCEPT [Suspect]
     Active Substance: AFLIBERCEPT
     Indication: RECTAL CANCER
     Dosage: 372 MG, QCY
     Route: 042
     Dates: start: 20190306, end: 20190306
  4. BLINDED AFLIBERCEPT [Suspect]
     Active Substance: AFLIBERCEPT
     Indication: RECTAL CANCER
     Dosage: 372 MG, QCY
     Route: 042
     Dates: start: 20190306, end: 20190306
  5. BLINDED PLACEBO [Suspect]
     Active Substance: INVESTIGATIONAL PRODUCT
     Indication: RECTAL CANCER
     Dosage: 372 MG, QCY
     Route: 042
     Dates: start: 20190306, end: 20190306
  6. FLUOROURACIL. [Suspect]
     Active Substance: FLUOROURACIL
     Indication: RECTAL CANCER
     Dosage: 6080 MG, QCY
     Route: 042
     Dates: start: 20190306, end: 20190306
  7. FOLINIC ACID [Suspect]
     Active Substance: LEUCOVORIN
     Indication: RECTAL CANCER
     Dosage: 760 MG, QCY
     Route: 042
     Dates: start: 20190306, end: 20190306

REACTIONS (1)
  - Chills [Recovered/Resolved]

NARRATIVE: CASE EVENT DATE: 20190308
